FAERS Safety Report 19962755 (Version 2)
Quarter: 2021Q4

REPORT INFORMATION
  Report Type: Other
  Country: US (occurrence: None)
  Receive Date: 20211018
  Receipt Date: 20211106
  Transmission Date: 20220303
  Serious: No
  Sender: FDA-Public Use
  Company Number: US-ROCHE-2934668

PATIENT
  Age: 45 Year
  Sex: Female
  Weight: 80.812 kg

DRUGS (4)
  1. OCREVUS [Suspect]
     Active Substance: OCRELIZUMAB
     Indication: Relapsing multiple sclerosis
     Dosage: TWO HALF DOSES ;ONGOING : YES?DATE OF TREATMENT: 02/APR/2021
     Route: 042
     Dates: start: 20210319
  2. COVID-19 VACCINE [Concomitant]
     Indication: COVID-19
     Dosage: 2 DOSES
     Dates: start: 202102
  3. COVID-19 VACCINE [Concomitant]
     Dosage: ONE DOSE?BOOSTER DOSE
     Dates: start: 202108, end: 202108
  4. TYLENOL [Concomitant]
     Active Substance: ACETAMINOPHEN

REACTIONS (1)
  - COVID-19 [Recovered/Resolved]

NARRATIVE: CASE EVENT DATE: 20210801
